FAERS Safety Report 17614515 (Version 1)
Quarter: 2020Q2

REPORT INFORMATION
  Report Type: Spontaneous
  Country: US (occurrence: US)
  Receive Date: 20200402
  Receipt Date: 20200402
  Transmission Date: 20200713
  Serious: No
  Sender: FDA-Public Use
  Company Number: US-BRISTOL-MYERS SQUIBB COMPANY-BMS-2020-027896

PATIENT
  Sex: Female
  Weight: 83.91 kg

DRUGS (1)
  1. SPRYCEL [Suspect]
     Active Substance: DASATINIB
     Indication: CHRONIC MYELOID LEUKAEMIA
     Dosage: 100 MG EVERY DAY
     Route: 048
     Dates: start: 201912

REACTIONS (2)
  - Swelling face [Unknown]
  - Eye swelling [Unknown]
